FAERS Safety Report 24606294 (Version 1)
Quarter: 2024Q4

REPORT INFORMATION
  Report Type: Spontaneous
  Country: JP (occurrence: JP)
  Receive Date: 20241112
  Receipt Date: 20241112
  Transmission Date: 20250114
  Serious: Yes (Other)
  Sender: ALEXION PHARMACEUTICALS
  Company Number: JP-ASTRAZENECA-240115061_011620_P_1

PATIENT

DRUGS (6)
  1. LYNPARZA [Suspect]
     Active Substance: OLAPARIB
     Indication: Ovarian cancer
     Dosage: 150 MILLIGRAM, UNK
  2. LYNPARZA [Suspect]
     Active Substance: OLAPARIB
     Dosage: 150 MILLIGRAM, UNK
  3. LYNPARZA [Suspect]
     Active Substance: OLAPARIB
     Dosage: 150 MILLIGRAM, UNK
  4. LYNPARZA [Suspect]
     Active Substance: OLAPARIB
     Dosage: 150 MILLIGRAM, UNK
  5. BEVACIZUMAB [Concomitant]
     Active Substance: BEVACIZUMAB
     Indication: Ovarian cancer
     Dosage: DOSE UNKNOWN
  6. BEVACIZUMAB [Concomitant]
     Active Substance: BEVACIZUMAB
     Dosage: DOSE UNKNOWN
     Route: 065

REACTIONS (1)
  - Malignant neoplasm progression [Unknown]
